FAERS Safety Report 7637201-5 (Version None)
Quarter: 2011Q3

REPORT INFORMATION
  Report Type: 
  Country: None (occurrence: None)
  Receive Date: 20110726
  Receipt Date: 20110712
  Transmission Date: 20111222
  Serious: Yes (Hospitalization, Other)
  Sender: FDA-Public Use
  Company Number: PHHY2011KR62665

PATIENT

DRUGS (10)
  1. PRAVASTATIN SODIUM [Concomitant]
     Dosage: UNK UKN, UNK
  2. TAMSULOSIN HCL [Concomitant]
     Dosage: UNK UKN, UNK
  3. APROVEL [Concomitant]
     Dosage: UNK UKN, UNK
  4. NORVASC [Concomitant]
     Dosage: UNK UKN, UNK
  5. DIGOXIN [Concomitant]
     Dosage: UNK UKN, UNK
  6. PLAVIX [Concomitant]
     Dosage: UNK UKN, UNK
  7. KEPPRA [Concomitant]
     Dosage: UNK UKN, UNK
  8. TEGRETOL [Suspect]
     Dosage: UNK UKN, UNK
  9. LIPIDIL [Concomitant]
     Dosage: UNK UKN, UNK
  10. ULCERLMIN [Concomitant]
     Dosage: UNK UKN, UNK

REACTIONS (7)
  - HEMIPLEGIA [None]
  - ALANINE AMINOTRANSFERASE INCREASED [None]
  - ASPARTATE AMINOTRANSFERASE INCREASED [None]
  - ASTHENIA [None]
  - HYPERLIPIDAEMIA [None]
  - APHASIA [None]
  - ANAEMIA [None]
